FAERS Safety Report 5633203-9 (Version None)
Quarter: 2008Q1

REPORT INFORMATION
  Report Type: 
  Country: None (occurrence: None)
  Receive Date: 20080215
  Receipt Date: 20080212
  Transmission Date: 20080703
  Serious: Yes (Other)
  Sender: FDA-Public Use
  Company Number: TCI2008A00352

PATIENT
  Age: 46 Year
  Sex: Female

DRUGS (2)
  1. LANSAP 400 (LANSOPRAZOLE, CLARITHROMYCIN, AMOXICILLIN) [Suspect]
     Indication: HELICOBACTER INFECTION
     Dosage: 1 CARD (0.5 CARD, 2 IN 1 D) PER ORAL
     Route: 048
     Dates: start: 20080117, end: 20080123
  2. CORTICOSTEROIDS [Concomitant]
     Indication: DRUG ERUPTION
     Dates: start: 20080124

REACTIONS (5)
  - CEREBRAL HAEMORRHAGE [None]
  - DRUG ERUPTION [None]
  - HEADACHE [None]
  - INTRACRANIAL VENOUS SINUS THROMBOSIS [None]
  - PRURITUS [None]
